FAERS Safety Report 8143887-1 (Version None)
Quarter: 2012Q1

REPORT INFORMATION
  Report Type: 
  Country: None (occurrence: None)
  Receive Date: 20120217
  Receipt Date: 20120203
  Transmission Date: 20120608
  Serious: Yes (Other)
  Sender: FDA-Public Use
  Company Number: US-RANBAXY-2012US-52525

PATIENT

DRUGS (2)
  1. SINGULAIR [Concomitant]
     Indication: HYPERSENSITIVITY
     Route: 065
  2. LORATADINE AND PSEUDOEPHEDRINE SULFATE [Suspect]
     Indication: HYPERSENSITIVITY
     Dosage: 1 DF, ONCE A DAY
     Route: 065

REACTIONS (1)
  - HAEMOPTYSIS [None]
